FAERS Safety Report 9770259 (Version 5)
Quarter: 2014Q1

REPORT INFORMATION
  Report Type: Spontaneous
  Country: JP (occurrence: JP)
  Receive Date: 20131218
  Receipt Date: 20140224
  Transmission Date: 20141002
  Serious: Yes (Hospitalization)
  Sender: FDA-Public Use
  Company Number: JP-ABBVIE-13P-087-1173046-00

PATIENT
  Age: 66 Year
  Sex: Male
  Weight: 78 kg

DRUGS (9)
  1. LEUPLIN [Suspect]
     Indication: PROSTATE CANCER
     Route: 058
     Dates: start: 20121005, end: 20130718
  2. BICALUTAMIDE [Concomitant]
     Indication: PRODUCT USED FOR UNKNOWN INDICATION
     Dates: start: 20121005, end: 20130718
  3. REPAGLINIDE [Concomitant]
  4. AMLODIPINE BESILATE [Concomitant]
  5. NICORANDIL [Concomitant]
  6. CARVEDILOL [Concomitant]
  7. BAYASPIRIN [Concomitant]
  8. WARFARIN [Concomitant]
  9. EZETIMIBE [Concomitant]

REACTIONS (1)
  - Diabetes mellitus [Unknown]
